FAERS Safety Report 4773712-8 (Version None)
Quarter: 2005Q3

REPORT INFORMATION
  Report Type: 
  Country: None (occurrence: None)
  Receive Date: 20050919
  Receipt Date: 20050907
  Transmission Date: 20060218
  Serious: Yes (Death, Hospitalization)
  Sender: FDA-Public Use
  Company Number: HQWYE283207SEP05

PATIENT
  Age: 85 Year
  Sex: Female

DRUGS (4)
  1. CORDARONE [Suspect]
     Dosage: 200 MG 1 X PER 1 DAY, ORAL
     Route: 048
     Dates: end: 20050630
  2. COVERSIL (PERINDOPRIL) [Suspect]
     Dosage: 4 MG 1 X PER 1 DAY, ORAL
     Route: 048
     Dates: end: 20050630
  3. AMITRIPTYLINE HCL [Suspect]
     Dosage: 25 MG 1 X PER 1 DAY, ORAL
     Route: 048
     Dates: start: 20050613, end: 20050628
  4. COLCHICINE    (COLCHICINE) [Concomitant]

REACTIONS (3)
  - HEPATITIS ACUTE [None]
  - INTESTINAL ISCHAEMIA [None]
  - RENAL FAILURE ACUTE [None]
